FAERS Safety Report 6578630 (Version 2)
Quarter: 2020Q2

REPORT INFORMATION
  Report Type: Spontaneous
  Country: US (occurrence: US)
  Receive Date: 20080312
  Receipt Date: 20200423
  Transmission Date: 20200714
  Serious: Yes (Death, Congenital Anomaly)
  Sender: FDA-Public Use
  Company Number: US-JNJFOC-20080300761

PATIENT
  Age: 0 Day
  Sex: Male
  Weight: 2.77 kg

DRUGS (6)
  1. NEURONTIN [Suspect]
     Active Substance: GABAPENTIN
     Indication: FOETAL EXPOSURE DURING PREGNANCY
     Route: 064
     Dates: start: 2006, end: 20070526
  2. CRESTOR [Suspect]
     Active Substance: ROSUVASTATIN CALCIUM
     Indication: FOETAL EXPOSURE DURING PREGNANCY
     Route: 064
     Dates: start: 2006, end: 20070526
  3. PROVIGIL [Suspect]
     Active Substance: MODAFINIL
     Indication: FOETAL EXPOSURE DURING PREGNANCY
     Route: 064
     Dates: start: 2006, end: 20070526
  4. OXYBUTYNIN HYDROCHLORIDE [Suspect]
     Active Substance: OXYBUTYNIN CHLORIDE
     Indication: PRODUCT USED FOR UNKNOWN INDICATION
     Route: 064
     Dates: start: 2006, end: 20070526
  5. GLUCOVANCE [Suspect]
     Active Substance: GLYBURIDE\METFORMIN HYDROCHLORIDE
     Indication: FOETAL EXPOSURE DURING PREGNANCY
     Route: 065
     Dates: start: 2002, end: 20070526
  6. REBIF [Suspect]
     Active Substance: INTERFERON BETA-1A
     Indication: FOETAL EXPOSURE DURING PREGNANCY
     Route: 064
     Dates: start: 20060426, end: 20070526

REACTIONS (6)
  - Limb malformation [Fatal]
  - Talipes [Fatal]
  - Foetal exposure during pregnancy [Recovered/Resolved]
  - Spine malformation [Fatal]
  - Congenital musculoskeletal anomaly [Fatal]
  - Pulmonary malformation [Fatal]

NARRATIVE: CASE EVENT DATE: 20071225
